FAERS Safety Report 6787863-X (Version None)
Quarter: 2010Q2

REPORT INFORMATION
  Report Type: 
  Country: None (occurrence: None)
  Receive Date: 20100623
  Receipt Date: 20070928
  Transmission Date: 20101027
  Serious: No
  Sender: FDA-Public Use
  Company Number: US-PFIZER INC-2007082285

PATIENT
  Sex: Female
  Weight: 77.11 kg

DRUGS (1)
  1. DEPO-PROVERA SUSPENSION/INJ [Suspect]
     Indication: CONTRACEPTION
     Dosage: INJECTION
     Dates: start: 20070101, end: 20070101

REACTIONS (2)
  - EAR INFECTION [None]
  - VAGINAL HAEMORRHAGE [None]
